FAERS Safety Report 15453599 (Version 3)
Quarter: 2018Q4

REPORT INFORMATION
  Report Type: Spontaneous
  Country: US (occurrence: US)
  Receive Date: 20181001
  Receipt Date: 20181217
  Transmission Date: 20190204
  Serious: Yes (Other)
  Sender: FDA-Public Use
  Company Number: US-VIFOR (INTERNATIONAL) INC.-VIT-2018-09259

PATIENT
  Age: 74 Year
  Sex: Male

DRUGS (15)
  1. VELTASSA [Suspect]
     Active Substance: PATIROMER
     Route: 048
     Dates: start: 20180914
  2. AMIODARONE [Concomitant]
     Active Substance: AMIODARONE
  3. RENVELA [Concomitant]
     Active Substance: SEVELAMER CARBONATE
  4. CARVEDILOL. [Concomitant]
     Active Substance: CARVEDILOL
  5. ALLOPURINOL. [Concomitant]
     Active Substance: ALLOPURINOL
  6. FINASTERIDE. [Concomitant]
     Active Substance: FINASTERIDE
  7. MIDODRINE [Concomitant]
     Active Substance: MIDODRINE
  8. VENOFER [Concomitant]
     Active Substance: IRON SUCROSE
     Route: 041
  9. SENSIPAR [Concomitant]
     Active Substance: CINACALCET HYDROCHLORIDE
  10. VITAMIN D [Concomitant]
     Active Substance: CHOLECALCIFEROL
  11. LYRICA [Concomitant]
     Active Substance: PREGABALIN
  12. VELTASSA [Suspect]
     Active Substance: PATIROMER
     Indication: HYPERKALAEMIA
     Dosage: NON DIALYSIS DAYS
     Route: 048
     Dates: start: 201802
  13. VELTASSA [Suspect]
     Active Substance: PATIROMER
     Route: 048
     Dates: start: 201809
  14. VELTASSA [Suspect]
     Active Substance: PATIROMER
     Route: 048
     Dates: start: 20180916
  15. WARFARIN [Concomitant]
     Active Substance: WARFARIN

REACTIONS (5)
  - Off label use [Unknown]
  - Loss of consciousness [Recovered/Resolved]
  - Asthenia [Recovered/Resolved]
  - Hypotension [Recovered/Resolved]
  - Intercepted product prescribing error [Unknown]

NARRATIVE: CASE EVENT DATE: 2018
